FAERS Safety Report 8773018 (Version 1)
Quarter: 2012Q4

REPORT INFORMATION
  Report Type: Report from Study
  Country: US (occurrence: US)
  Receive Date: 20120907
  Receipt Date: 20120907
  Transmission Date: 20130627
  Serious: Yes (Other)
  Sender: FDA-Public Use
  Company Number: US-ABBOTT-12P-163-0974951-00

PATIENT
  Age: 19 Year
  Sex: Female

DRUGS (2)
  1. HUMIRA [Suspect]
     Dosage: loading dose
     Dates: start: 20120811, end: 20120811
  2. STEROID [Concomitant]
     Indication: PSORIASIS
     Route: 061

REACTIONS (8)
  - Loss of consciousness [Unknown]
  - Malaise [Recovering/Resolving]
  - Migraine [Recovering/Resolving]
  - Vertigo [Unknown]
  - Nausea [Unknown]
  - Asthenia [Unknown]
  - Fall [Unknown]
  - Head injury [Unknown]
